FAERS Safety Report 25751456 (Version 1)
Quarter: 2025Q3

REPORT INFORMATION
  Report Type: Spontaneous
  Country: GB (occurrence: GB)
  Receive Date: 20250902
  Receipt Date: 20250902
  Transmission Date: 20251021
  Serious: Yes (Other)
  Sender: MYLAN
  Company Number: None

PATIENT
  Age: 56 Year
  Sex: Female
  Weight: 170 kg

DRUGS (12)
  1. CANDESARTAN [Suspect]
     Active Substance: CANDESARTAN
     Indication: Hypertension
     Route: 065
  2. CANDESARTAN [Suspect]
     Active Substance: CANDESARTAN
  3. CANDESARTAN [Suspect]
     Active Substance: CANDESARTAN
  4. CANDESARTAN [Suspect]
     Active Substance: CANDESARTAN
     Route: 065
  5. CANDESARTAN [Suspect]
     Active Substance: CANDESARTAN
     Route: 065
  6. CANDESARTAN [Suspect]
     Active Substance: CANDESARTAN
  7. CANDESARTAN [Suspect]
     Active Substance: CANDESARTAN
  8. CANDESARTAN [Suspect]
     Active Substance: CANDESARTAN
     Route: 065
  9. LERCANIDIPINE [Concomitant]
     Active Substance: LERCANIDIPINE
     Indication: Hypertension
  10. LERCANIDIPINE [Concomitant]
     Active Substance: LERCANIDIPINE
     Route: 065
  11. LERCANIDIPINE [Concomitant]
     Active Substance: LERCANIDIPINE
     Route: 065
  12. LERCANIDIPINE [Concomitant]
     Active Substance: LERCANIDIPINE

REACTIONS (16)
  - Abdominal pain upper [Recovered/Resolved]
  - Feeling abnormal [Recovering/Resolving]
  - Pain in extremity [Recovered/Resolved]
  - Limb discomfort [Recovered/Resolved]
  - Facial discomfort [Recovering/Resolving]
  - Throat tightness [Recovered/Resolved]
  - Fatigue [Recovering/Resolving]
  - Photophobia [Recovering/Resolving]
  - Anxiety [Recovering/Resolving]
  - Morning sickness [Recovered/Resolved]
  - Nephrolithiasis [Unknown]
  - Hyperadrenocorticism [Unknown]
  - Arthralgia [Recovering/Resolving]
  - Dizziness [Recovering/Resolving]
  - Diarrhoea [Recovering/Resolving]
  - Vitamin D deficiency [Unknown]

NARRATIVE: CASE EVENT DATE: 20240308
